FAERS Safety Report 12485454 (Version 2)
Quarter: 2017Q2

REPORT INFORMATION
  Report Type: Spontaneous
  Country: US (occurrence: US)
  Receive Date: 20160621
  Receipt Date: 20170622
  Transmission Date: 20170830
  Serious: No
  Sender: FDA-Public Use
  Company Number: US-SA-2015SA179495

PATIENT
  Age: 29 Year
  Sex: Female
  Weight: 60.32 kg

DRUGS (1)
  1. CEREZYME [Suspect]
     Active Substance: IMIGLUCERASE
     Indication: GAUCHER^S DISEASE
     Dosage: DOSE: 3600 UNITS IN 100 ML NS OVER AN HOUR DOSE:59.68 UNIT(S)/KILOGRAM BODYWEIGHT
     Route: 041
     Dates: start: 20150818

REACTIONS (7)
  - Vomiting in pregnancy [Unknown]
  - Viral upper respiratory tract infection [Recovering/Resolving]
  - Skin lesion [Unknown]
  - Pruritus [Unknown]
  - Nasal congestion [Recovering/Resolving]
  - Exposure during pregnancy [Unknown]
  - Fatigue [Unknown]

NARRATIVE: CASE EVENT DATE: 20151030
